FAERS Safety Report 12625374 (Version 2)
Quarter: 2016Q4

REPORT INFORMATION
  Report Type: Spontaneous
  Country: US (occurrence: US)
  Receive Date: 20160805
  Receipt Date: 20161010
  Transmission Date: 20170207
  Serious: Yes (Hospitalization)
  Sender: FDA-Public Use
  Company Number: US-JNJFOC-20160721149

PATIENT
  Age: 45 Year
  Sex: Female

DRUGS (2)
  1. XARELTO [Suspect]
     Active Substance: RIVAROXABAN
     Indication: PULMONARY EMBOLISM
     Dosage: 15-20MG (DAILY)
     Route: 048
     Dates: start: 20131026, end: 20140108
  2. TRAMADOL. [Concomitant]
     Active Substance: TRAMADOL
     Indication: PRODUCT USED FOR UNKNOWN INDICATION
     Route: 048

REACTIONS (3)
  - Haemothorax [Recovering/Resolving]
  - Pleural effusion [Recovering/Resolving]
  - Atelectasis [Recovering/Resolving]

NARRATIVE: CASE EVENT DATE: 20140108
